FAERS Safety Report 13560002 (Version 1)
Quarter: 2017Q2

REPORT INFORMATION
  Report Type: Report from Study
  Country: CO (occurrence: CO)
  Receive Date: 20170518
  Receipt Date: 20170518
  Transmission Date: 20170830
  Serious: Yes (Hospitalization, Other)
  Sender: FDA-Public Use
  Company Number: CO-BRISTOL-MYERS SQUIBB COMPANY-BMS-2017-034545

PATIENT
  Age: 57 Year
  Sex: Male

DRUGS (1)
  1. NIVOLUMAB [Suspect]
     Active Substance: NIVOLUMAB
     Indication: RENAL CANCER
     Dosage: 180 MG, UNK
     Route: 065
     Dates: start: 20170403

REACTIONS (5)
  - Erythema [Recovered/Resolved]
  - Dyspnoea [Recovered/Resolved]
  - Hyperhidrosis [Recovered/Resolved]
  - Pulmonary embolism [Recovered/Resolved]
  - Adverse event [Recovered/Resolved]

NARRATIVE: CASE EVENT DATE: 20170418
